FAERS Safety Report 7077460-3 (Version None)
Quarter: 2010Q4

REPORT INFORMATION
  Report Type: 
  Country: None (occurrence: None)
  Receive Date: 20101101
  Receipt Date: 20101020
  Transmission Date: 20110411
  Serious: Yes (Death, Hospitalization, Other)
  Sender: FDA-Public Use
  Company Number: BR-ELI_LILLY_AND_COMPANY-BR201009003201

PATIENT
  Sex: Female

DRUGS (4)
  1. FORTEO [Suspect]
     Indication: OSTEOPOROSIS
     Dosage: 20 MG, DAILY (1/D)
     Route: 058
     Dates: start: 20090301, end: 20100701
  2. INSULIN [Concomitant]
     Dosage: UNK, UNKNOWN
     Route: 065
  3. ACETYLSALICYLIC ACID [Concomitant]
     Dosage: UNK, UNKNOWN
     Route: 065
  4. CLUSIVOL [Concomitant]
     Dosage: UNK, UNKNOWN
     Route: 065

REACTIONS (9)
  - DIABETES MELLITUS [None]
  - DIABETIC COMPLICATION [None]
  - EATING DISORDER [None]
  - EXTREMITY NECROSIS [None]
  - HYPERGLYCAEMIA [None]
  - HYPERTENSION [None]
  - HYPOGLYCAEMIA [None]
  - MULTI-ORGAN FAILURE [None]
  - WOUND HAEMORRHAGE [None]
